FAERS Safety Report 7169434-9 (Version None)
Quarter: 2010Q4

REPORT INFORMATION
  Report Type: 
  Country: None (occurrence: None)
  Receive Date: 20101217
  Receipt Date: 20101215
  Transmission Date: 20110411
  Serious: Yes (Hospitalization, Other)
  Sender: FDA-Public Use
  Company Number: US-ASTRAZENECA-2007UW26725

PATIENT
  Age: 13641 Day
  Sex: Female
  Weight: 97.1 kg

DRUGS (60)
  1. SEROQUEL [Suspect]
     Indication: BIPOLAR DISORDER
     Dosage: 25-400 MG
     Route: 048
     Dates: start: 19990101
  2. SEROQUEL [Suspect]
     Indication: DEPRESSION
     Dosage: 25-400 MG
     Route: 048
     Dates: start: 19990101
  3. SEROQUEL [Suspect]
     Indication: ANXIETY
     Dosage: 25-400 MG
     Route: 048
     Dates: start: 19990101
  4. SEROQUEL [Suspect]
     Indication: SLEEP DISORDER
     Dosage: 25-400 MG
     Route: 048
     Dates: start: 19990101
  5. SEROQUEL [Suspect]
     Dosage: 25-300 MG
     Route: 048
     Dates: start: 20020101, end: 20030101
  6. SEROQUEL [Suspect]
     Dosage: 25-300 MG
     Route: 048
     Dates: start: 20020101, end: 20030101
  7. SEROQUEL [Suspect]
     Dosage: 25-300 MG
     Route: 048
     Dates: start: 20020101, end: 20030101
  8. SEROQUEL [Suspect]
     Dosage: 25-300 MG
     Route: 048
     Dates: start: 20020101, end: 20030101
  9. SEROQUEL [Suspect]
     Dosage: 25 MG
     Route: 048
     Dates: start: 20020906
  10. SEROQUEL [Suspect]
     Dosage: 25 MG
     Route: 048
     Dates: start: 20020906
  11. SEROQUEL [Suspect]
     Dosage: 25 MG
     Route: 048
     Dates: start: 20020906
  12. SEROQUEL [Suspect]
     Dosage: 25 MG
     Route: 048
     Dates: start: 20020906
  13. SEROQUEL [Suspect]
     Dosage: 300 MG 2 AND 1/2 TABLETS AT BEDTIME
     Route: 048
     Dates: start: 20051111
  14. SEROQUEL [Suspect]
     Dosage: 300 MG 2 AND 1/2 TABLETS AT BEDTIME
     Route: 048
     Dates: start: 20051111
  15. SEROQUEL [Suspect]
     Dosage: 300 MG 2 AND 1/2 TABLETS AT BEDTIME
     Route: 048
     Dates: start: 20051111
  16. SEROQUEL [Suspect]
     Dosage: 300 MG 2 AND 1/2 TABLETS AT BEDTIME
     Route: 048
     Dates: start: 20051111
  17. SEROQUEL [Suspect]
     Dosage: 300 MG 2 TO 1/2 A DAY
     Route: 048
     Dates: start: 20060101
  18. SEROQUEL [Suspect]
     Dosage: 300 MG 2 TO 1/2 A DAY
     Route: 048
     Dates: start: 20060101
  19. SEROQUEL [Suspect]
     Dosage: 300 MG 2 TO 1/2 A DAY
     Route: 048
     Dates: start: 20060101
  20. SEROQUEL [Suspect]
     Dosage: 300 MG 2 TO 1/2 A DAY
     Route: 048
     Dates: start: 20060101
  21. SEROQUEL [Suspect]
     Dosage: 300 MG 2 TO 1/2 A DAY
     Route: 048
     Dates: start: 20090301
  22. SEROQUEL [Suspect]
     Dosage: 300 MG 2 TO 1/2 A DAY
     Route: 048
     Dates: start: 20090301
  23. SEROQUEL [Suspect]
     Dosage: 300 MG 2 TO 1/2 A DAY
     Route: 048
     Dates: start: 20090301
  24. SEROQUEL [Suspect]
     Dosage: 300 MG 2 TO 1/2 A DAY
     Route: 048
     Dates: start: 20090301
  25. ABILIFY [Concomitant]
     Dates: start: 20060330, end: 20060330
  26. PREVACID [Concomitant]
  27. MEVACOR [Concomitant]
  28. METFORMIN HYDROCHLORIDE [Concomitant]
  29. VALIUM [Concomitant]
     Indication: ANXIETY
     Dates: start: 20051105
  30. LISINOPRIL [Concomitant]
     Route: 048
     Dates: start: 20060119
  31. PAROXETINE HYDROCHLORIDE [Concomitant]
     Route: 048
     Dates: start: 20051022
  32. PROTONIX [Concomitant]
  33. PREMARIN [Concomitant]
  34. NORVASC [Concomitant]
  35. CLONIDINE [Concomitant]
     Indication: BIPOLAR DISORDER
  36. CLONIDINE [Concomitant]
     Indication: HYPERTENSION
  37. HYDROCODONE [Concomitant]
  38. RANITIDINE HYDROCHLORIDE [Concomitant]
  39. ULTRAM [Concomitant]
  40. TYLENOL (CAPLET) [Concomitant]
  41. ACTOS [Concomitant]
  42. CYMBALTA [Concomitant]
  43. PAXIL CR [Concomitant]
  44. VISTARIL [Concomitant]
  45. LEVSINEX [Concomitant]
  46. SERZONE [Concomitant]
  47. WELLBUTRIN XL [Concomitant]
  48. PRILOSEC [Concomitant]
  49. MAXZIDE [Concomitant]
  50. DIFLUCAN [Concomitant]
  51. LAMISIL [Concomitant]
  52. VIOXX [Concomitant]
     Dates: start: 20030108
  53. LORSTATIN [Concomitant]
  54. HYDROXYZINE HCL [Concomitant]
     Indication: ANXIETY
  55. HYDROXYZINE HCL [Concomitant]
     Dates: start: 20060211
  56. CARBAZAZEPINE [Concomitant]
  57. ZOLOFT [Concomitant]
  58. LEXAPRO [Concomitant]
  59. PROZAC [Concomitant]
  60. PHENAZOPYRIDINE [Concomitant]
     Indication: DYSURIA
     Route: 048
     Dates: start: 20060119

REACTIONS (19)
  - ANGINA PECTORIS [None]
  - CATARACT [None]
  - CORONARY ARTERY DISEASE [None]
  - DEHYDRATION [None]
  - DIABETES MELLITUS [None]
  - DIABETIC EYE DISEASE [None]
  - DIABETIC NEUROPATHY [None]
  - DIABETIC RETINOPATHY [None]
  - HYPERTENSION [None]
  - MENISCUS LESION [None]
  - NEUROPATHY PERIPHERAL [None]
  - PALPITATIONS [None]
  - PANIC ATTACK [None]
  - POST-TRAUMATIC STRESS DISORDER [None]
  - RENAL FAILURE ACUTE [None]
  - RETINAL HAEMORRHAGE [None]
  - SEXUAL DYSFUNCTION [None]
  - SYNOVITIS [None]
  - TYPE 2 DIABETES MELLITUS [None]
